FAERS Safety Report 13505386 (Version 2)
Quarter: 2017Q3

REPORT INFORMATION
  Report Type: Report from Study
  Country: US (occurrence: US)
  Receive Date: 20170502
  Receipt Date: 20170718
  Transmission Date: 20171127
  Serious: Yes (Hospitalization)
  Sender: FDA-Public Use
  Company Number: US-ACTELION-A-NJ2017-153130

PATIENT
  Age: 67 Year
  Sex: Female

DRUGS (12)
  1. VITAMIN D [Concomitant]
     Active Substance: CHOLECALCIFEROL
  2. HUMALOG [Concomitant]
     Active Substance: INSULIN LISPRO
  3. EPOGEN [Concomitant]
     Active Substance: ERYTHROPOIETIN
  4. LASIX [Concomitant]
     Active Substance: FUROSEMIDE
  5. ARANESP [Concomitant]
     Active Substance: DARBEPOETIN ALFA
  6. NOVOLIN [Concomitant]
     Active Substance: INSULIN HUMAN
  7. NOVOLOG [Concomitant]
     Active Substance: INSULIN ASPART
  8. PREDNISONE. [Concomitant]
     Active Substance: PREDNISONE
  9. TRACLEER [Suspect]
     Active Substance: BOSENTAN
     Indication: PULMONARY HYPERTENSION
     Dosage: 125 MG, QD
     Route: 048
     Dates: start: 20110310
  10. PRIMIDONE. [Concomitant]
     Active Substance: PRIMIDONE
  11. SYNTHROID [Concomitant]
     Active Substance: LEVOTHYROXINE SODIUM
  12. CALCIUM [Concomitant]
     Active Substance: CALCIUM

REACTIONS (5)
  - Drug dose omission [Recovered/Resolved]
  - Nausea [Unknown]
  - Blood glucose decreased [Not Recovered/Not Resolved]
  - Pneumonia [Recovered/Resolved]
  - Respiration abnormal [Unknown]
